FAERS Safety Report 21683880 (Version 1)
Quarter: 2022Q4

REPORT INFORMATION
  Report Type: Spontaneous
  Country: DE (occurrence: None)
  Receive Date: 20221205
  Receipt Date: 20221205
  Transmission Date: 20230112
  Serious: Yes (Other)
  Sender: FDA-Public Use
  Company Number: DE-ROCHE-3116556

PATIENT
  Sex: Male
  Weight: 39.2 kg

DRUGS (4)
  1. ZELBORAF [Suspect]
     Active Substance: VEMURAFENIB
     Indication: Erdheim-Chester disease
     Dosage: MOST RECENT DOSE WAS ADMINISTERED ON 30/NOV/2022
     Route: 048
     Dates: start: 20150206
  2. FERROUS GLYCINE SULFATE [Concomitant]
     Active Substance: FERROUS GLYCINE SULFATE
     Indication: Iron deficiency
     Route: 048
     Dates: end: 20221130
  3. CLOBAZAM [Concomitant]
     Active Substance: CLOBAZAM
     Route: 048
     Dates: start: 2015
  4. PHENYTOIN [Concomitant]
     Active Substance: PHENYTOIN
     Route: 048
     Dates: start: 2015

REACTIONS (6)
  - Off label use [Unknown]
  - Tumour marker increased [Unknown]
  - Leukopenia [Recovered/Resolved]
  - Basedow^s disease [Unknown]
  - Iron deficiency [Unknown]
  - Petit mal epilepsy [Unknown]

NARRATIVE: CASE EVENT DATE: 20150206
